FAERS Safety Report 4523309-X (Version None)
Quarter: 2004Q4

REPORT INFORMATION
  Report Type: 
  Country: None (occurrence: None)
  Receive Date: 20041210
  Receipt Date: 20041201
  Transmission Date: 20050328
  Serious: Yes (Other)
  Sender: FDA-Public Use
  Company Number: JP-JNJFOC-20041200412

PATIENT
  Age: 70 Year
  Sex: Female

DRUGS (1)
  1. LEVOFLOXACIN [Suspect]
     Indication: BRONCHIECTASIS
     Route: 049
     Dates: start: 20041029, end: 20041103

REACTIONS (2)
  - MOBILITY DECREASED [None]
  - PAIN [None]
